FAERS Safety Report 19083098 (Version 1)
Quarter: 2021Q2

REPORT INFORMATION
  Report Type: Spontaneous
  Country: US (occurrence: US)
  Receive Date: 20210401
  Receipt Date: 20210401
  Transmission Date: 20210717
  Serious: No
  Sender: FDA-Public Use
  Company Number: US-ASTRAZENECA-2021A142154

PATIENT
  Sex: Male

DRUGS (2)
  1. FASENRA [Suspect]
     Active Substance: BENRALIZUMAB
     Dosage: EVERY EIGHT WEEKS
     Route: 058
     Dates: start: 201802, end: 201911
  2. NUCALA [Concomitant]
     Active Substance: MEPOLIZUMAB
     Dosage: UNKNOWN
     Route: 065

REACTIONS (1)
  - Asthma [Unknown]
